FAERS Safety Report 9999458 (Version 4)
Quarter: 2014Q2

REPORT INFORMATION
  Report Type: Report from Study
  Country: JP (occurrence: JP)
  Receive Date: 20140312
  Receipt Date: 20140617
  Transmission Date: 20141212
  Serious: Yes (Hospitalization, Disabling)
  Sender: FDA-Public Use
  Company Number: JP-B.I. PHARMACEUTICALS,INC./RIDGEFIELD-2014-BI-09947NB

PATIENT
  Age: 76 Year
  Sex: Male
  Weight: 64.9 kg

DRUGS (7)
  1. TRAZENTA [Suspect]
     Indication: TYPE 2 DIABETES MELLITUS
     Dosage: 5 MG
     Route: 048
     Dates: start: 20140123, end: 20140128
  2. NOVOLIN 30R [Concomitant]
     Indication: TYPE 2 DIABETES MELLITUS
     Dosage: 14 U
     Route: 058
     Dates: end: 20140127
  3. DILTIAZEM HYDROCHLORIDE [Concomitant]
     Dosage: 1 ANZ
     Route: 048
     Dates: end: 20140127
  4. NICARDIPINE HYDROCHLORIDE [Concomitant]
     Dosage: 80 MG
     Route: 048
     Dates: end: 20140127
  5. SEIBULE [Concomitant]
     Indication: TYPE 2 DIABETES MELLITUS
     Dosage: 150 MG
     Route: 048
     Dates: end: 20140127
  6. IFENPRODIL TARTRATE [Concomitant]
     Dosage: 60 MG
     Route: 048
     Dates: end: 20140127
  7. CILOSTAZOL [Concomitant]
     Dosage: 200 MG
     Route: 048
     Dates: end: 20140127

REACTIONS (2)
  - Basilar artery occlusion [Recovered/Resolved with Sequelae]
  - Diarrhoea [Recovered/Resolved]
